FAERS Safety Report 21209627 (Version 2)
Quarter: 2022Q3

REPORT INFORMATION
  Report Type: Spontaneous
  Country: US (occurrence: US)
  Receive Date: 20220813
  Receipt Date: 20220815
  Transmission Date: 20221026
  Serious: Yes (Hospitalization)
  Sender: FDA-Public Use
  Company Number: US-NOVARTISPH-NVSC2022US180031

PATIENT
  Age: 32 Year
  Sex: Female
  Weight: 81.64 kg

DRUGS (1)
  1. AMLODIPINE BESYLATE\BENAZEPRIL HYDROCHLORIDE [Suspect]
     Active Substance: AMLODIPINE BESYLATE\BENAZEPRIL HYDROCHLORIDE
     Indication: Hypertension
     Dosage: 2.5 MG, QD
     Route: 048
     Dates: start: 20211120, end: 20220727

REACTIONS (1)
  - Hypersensitivity [Recovered/Resolved with Sequelae]

NARRATIVE: CASE EVENT DATE: 20220730
